FAERS Safety Report 10191218 (Version 3)
Quarter: 2014Q3

REPORT INFORMATION
  Report Type: Report from Study
  Country: JP (occurrence: JP)
  Receive Date: 20140523
  Receipt Date: 20140917
  Transmission Date: 20150326
  Serious: Yes (Hospitalization)
  Sender: FDA-Public Use
  Company Number: JP-PFIZER INC-2014137888

PATIENT
  Age: 46 Year
  Sex: Female
  Weight: 47 kg

DRUGS (17)
  1. DECADRON [Suspect]
     Active Substance: DEXAMETHASONE
     Dosage: 0.75 MG, 1X/DAY
     Dates: start: 20140318, end: 20140414
  2. ZOMETA [Concomitant]
     Active Substance: ZOLEDRONIC ACID
     Dosage: 4 MG, 1X/DAY
  3. DECADRON [Suspect]
     Active Substance: DEXAMETHASONE
     Dosage: 0.5 MG, 1X/DAY
     Route: 048
     Dates: start: 20140115, end: 20140227
  4. DECADRON [Suspect]
     Active Substance: DEXAMETHASONE
     Dosage: 125 UG, 1X/DAY
     Dates: start: 20140430, end: 20140520
  5. SELBEX [Concomitant]
     Active Substance: TEPRENONE
     Dosage: 50 MG, 3X/DAY
     Route: 048
  6. HOCHUUEKKITOU [Concomitant]
     Active Substance: HERBALS
     Dosage: 2.5 G, 3X/DAY
     Route: 048
  7. XALKORI [Suspect]
     Active Substance: CRIZOTINIB
     Indication: NON-SMALL CELL LUNG CANCER
     Dosage: 250 MG, 1X/ DAY (1 CAPSULE)
     Route: 048
     Dates: start: 20140108, end: 20140114
  8. XALKORI [Suspect]
     Active Substance: CRIZOTINIB
     Dosage: 250 MG, 2X/DAY (2 CAPSULES)
     Route: 048
     Dates: start: 20140115
  9. DECADRON [Suspect]
     Active Substance: DEXAMETHASONE
     Dosage: 0.5 MG, 1X/DAY
     Dates: start: 20140308, end: 20140317
  10. JUZENTAIHOTO [Concomitant]
     Dosage: 2.5 G, 3X/DAY
     Route: 048
  11. DECADRON [Suspect]
     Active Substance: DEXAMETHASONE
     Dosage: 0.25 MG, 1X/DAY
     Route: 048
     Dates: start: 20140415, end: 20140429
  12. ASPARA-CA [Concomitant]
     Active Substance: CALCIUM ASPARTATE
     Dosage: 400 MG, 3X/DAY
     Route: 048
  13. TAKEPRON [Concomitant]
     Active Substance: LANSOPRAZOLE
     Dosage: 15 MG, 1X/DAY
     Route: 048
  14. GOSHAJINKIGAN [Concomitant]
     Active Substance: HERBALS
     Dosage: 2.5 G, 3X/DAY
     Route: 048
     Dates: end: 20140219
  15. DECADRON [Suspect]
     Active Substance: DEXAMETHASONE
     Dosage: 1 MG, 1X/DAY
     Route: 048
     Dates: start: 20140228, end: 20140307
  16. METHYCOBAL [Concomitant]
     Active Substance: METHYLCOBALAMIN
     Dosage: 500 UG, 3X/DAY
     Route: 048
  17. ALINAMIN F [Concomitant]
     Active Substance: FURSULTIAMINE HYDROCHLORIDE
     Dosage: 25 MG, 3X/DAY
     Route: 048

REACTIONS (1)
  - Hyperglycaemia [Recovering/Resolving]

NARRATIVE: CASE EVENT DATE: 20140204
